FAERS Safety Report 4636539-3 (Version None)
Quarter: 2005Q2

REPORT INFORMATION
  Report Type: 
  Country: None (occurrence: None)
  Receive Date: 20050415
  Receipt Date: 20050404
  Transmission Date: 20051028
  Serious: Yes (Other)
  Sender: FDA-Public Use
  Company Number: TR-GLAXOSMITHKLINE-B0376783A

PATIENT
  Sex: Female

DRUGS (2)
  1. VINORELBINE TARTRATE [Suspect]
     Dosage: 20MGM2 CYCLIC
     Route: 065
  2. MITOMYCIN-C BULK POWDER [Suspect]
     Dosage: 10MGM2 CYCLIC
     Route: 065

REACTIONS (1)
  - SUBILEUS [None]
